FAERS Safety Report 7478707-1 (Version None)
Quarter: 2011Q2

REPORT INFORMATION
  Report Type: 
  Country: None (occurrence: None)
  Receive Date: 20110513
  Receipt Date: 20110429
  Transmission Date: 20111010
  Serious: Yes (Hospitalization)
  Sender: FDA-Public Use
  Company Number: US-JNJFOC-20101000839

PATIENT
  Sex: Male
  Weight: 31.9 kg

DRUGS (9)
  1. RISPERDAL [Concomitant]
  2. REMICADE [Suspect]
     Indication: INFLAMMATORY BOWEL DISEASE
     Route: 042
  3. MULTIVITAMINS WITH IRON [Concomitant]
  4. PRILOSEC [Concomitant]
  5. BENADRYL [Concomitant]
  6. CIMETIDINE [Concomitant]
  7. HUMIRA [Suspect]
     Route: 050
  8. PERIACTIN [Concomitant]
  9. HUMIRA [Suspect]
     Indication: INFLAMMATORY BOWEL DISEASE
     Route: 050

REACTIONS (3)
  - INJECTION RELATED REACTION [None]
  - PRURITUS [None]
  - FLUSHING [None]
